FAERS Safety Report 24090798 (Version 2)
Quarter: 2024Q3

REPORT INFORMATION
  Report Type: Spontaneous
  Country: PL (occurrence: PL)
  Receive Date: 20240715
  Receipt Date: 20240722
  Transmission Date: 20241017
  Serious: Yes (Hospitalization, Other)
  Sender: SANOFI AVENTIS
  Company Number: PL-MLMSERVICE-20240703-PI121215-00033-1

PATIENT
  Age: 82 Year
  Sex: Female

DRUGS (2)
  1. ASPIRIN [Suspect]
     Active Substance: ASPIRIN
     Dosage: 75 MG, QD
     Route: 048
  2. ENOXAPARIN SODIUM [Suspect]
     Active Substance: ENOXAPARIN SODIUM
     Dosage: UNK, THERAPEUDTIC DOSE
     Route: 058

REACTIONS (3)
  - Cardiac failure [Unknown]
  - Hypercoagulation [Unknown]
  - Gastrointestinal haemorrhage [Recovered/Resolved]
